FAERS Safety Report 15881636 (Version 1)
Quarter: 2019Q1

REPORT INFORMATION
  Report Type: Spontaneous
  Country: US (occurrence: US)
  Receive Date: 20190128
  Receipt Date: 20190128
  Transmission Date: 20190417
  Serious: No
  Sender: FDA-Public Use
  Company Number: US-SA-2019SA019460

PATIENT
  Sex: Female

DRUGS (1)
  1. IMOGAM RABIES-HT [Suspect]
     Active Substance: HUMAN RABIES VIRUS IMMUNE GLOBULIN
     Indication: IMMUNISATION
     Dosage: 300 U
     Route: 065

REACTIONS (1)
  - Underdose [Unknown]
